FAERS Safety Report 10132667 (Version 2)
Quarter: 2014Q2

REPORT INFORMATION
  Report Type: Spontaneous
  Country: US (occurrence: US)
  Receive Date: 20140428
  Receipt Date: 20140428
  Transmission Date: 20141212
  Serious: No
  Sender: FDA-Public Use
  Company Number: US-MALLINCKRODT-T201304101

PATIENT
  Age: 35 Year
  Sex: Male
  Weight: 97.51 kg

DRUGS (4)
  1. HYDROCODONE/ACETAMINOPHEN [Suspect]
     Indication: BACK PAIN
     Dosage: 7.5/500 MG , 1 TABLET TID
     Route: 048
     Dates: start: 201307, end: 201308
  2. HYDROCODONE/ACETAMINOPHEN [Suspect]
     Dosage: UNK
     Dates: start: 2012, end: 201307
  3. MUSCLE RELAXANTS [Concomitant]
  4. AMBIEN [Concomitant]
     Indication: INSOMNIA

REACTIONS (5)
  - Muscular weakness [Recovered/Resolved]
  - Fatigue [Unknown]
  - Dizziness [Recovered/Resolved]
  - Anxiety [Recovered/Resolved]
  - Nausea [Recovered/Resolved]
